FAERS Safety Report 8963152 (Version 1)
Quarter: 2012Q4

REPORT INFORMATION
  Report Type: 
  Country: US (occurrence: US)
  Receive Date: 20121213
  Receipt Date: 20121213
  Transmission Date: 20130627
  Serious: No
  Sender: FDA-Public Use
  Company Number: US-COVIDIEN/TYCO HEALTHCARE/MALLINCKRODT-T201201885

PATIENT
  Age: 57 Year
  Sex: Male
  Weight: 99.77 kg

DRUGS (6)
  1. OPTIMARK [Suspect]
     Indication: NUCLEAR MAGNETIC RESONANCE IMAGING BRAIN
     Dosage: 15 ml, single
     Route: 042
     Dates: start: 20130512, end: 20120512
  2. METOPROLOL [Concomitant]
     Indication: BLOOD PRESSURE
     Dosage: UNK
  3. ZOCOR [Concomitant]
     Indication: BLOOD PRESSURE
     Dosage: UNK
  4. NORVASC [Concomitant]
     Indication: BLOOD PRESSURE
     Dosage: UNK
  5. LOSARTAN [Concomitant]
     Indication: BLOOD PRESSURE
     Dosage: UNK
  6. TRAMADOL [Concomitant]
     Indication: PAIN
     Dosage: UNK

REACTIONS (2)
  - Renal pain [Not Recovered/Not Resolved]
  - Myalgia [Not Recovered/Not Resolved]
